FAERS Safety Report 4442944-0 (Version None)
Quarter: 2004Q3

REPORT INFORMATION
  Report Type: 
  Country: None (occurrence: None)
  Receive Date: 20040907
  Receipt Date: 20040907
  Transmission Date: 20050211
  Serious: Yes (Disabling)
  Sender: FDA-Public Use
  Company Number: None

PATIENT
  Age: 26 Year
  Sex: Female
  Weight: 83.4619 kg

DRUGS (2)
  1. SOLU-MEDROL [Suspect]
     Indication: ASTHMA
     Dosage: IV VARIED 30 MG - 485 MG
     Route: 042
  2. PREDNISONE [Suspect]

REACTIONS (7)
  - ARTHRALGIA [None]
  - ASEPTIC NECROSIS BONE [None]
  - CALCINOSIS [None]
  - PAIN [None]
  - PREMATURE AGEING [None]
  - TENDON DISORDER [None]
  - UTERINE DISORDER [None]
